FAERS Safety Report 8533623-9 (Version None)
Quarter: 2012Q3

REPORT INFORMATION
  Report Type: 
  Country: None (occurrence: None)
  Receive Date: 20120724
  Receipt Date: 20120713
  Transmission Date: 20120928
  Serious: No
  Sender: FDA-Public Use
  Company Number: US-BAYER-2012-071584

PATIENT
  Age: 64 Year
  Sex: Female
  Weight: 99.773 kg

DRUGS (4)
  1. OXYCONTIN [Concomitant]
  2. OXYCODONE HCL AND ACETAMINOPHEN [Concomitant]
  3. ALEVE (CAPLET) [Suspect]
     Indication: BACK PAIN
     Dosage: 2 DF, PRN
     Route: 048
     Dates: start: 20120629, end: 20120629
  4. IBUPROFEN [Concomitant]

REACTIONS (1)
  - BACK PAIN [None]
